FAERS Safety Report 18766067 (Version 7)
Quarter: 2021Q3

REPORT INFORMATION
  Report Type: Other
  Country: BR (occurrence: BR)
  Receive Date: 20210121
  Receipt Date: 20210706
  Transmission Date: 20211014
  Serious: Yes (Life-Threatening, Other)
  Sender: FDA-Public Use
  Company Number: BR-ROCHE-2751275

PATIENT
  Age: 62 Year
  Sex: Female

DRUGS (11)
  1. FOSTAIR [Concomitant]
     Active Substance: BECLOMETHASONE\FORMOTEROL
  2. BAMIFIX [Concomitant]
     Active Substance: BAMIFYLLINE HYDROCHLORIDE
  3. XOLAIR [Suspect]
     Active Substance: OMALIZUMAB
     Dosage: (STARTED 1 YEAR AND 8 MONTHS AGO)
     Route: 065
     Dates: start: 20201217
  4. XOLAIR [Suspect]
     Active Substance: OMALIZUMAB
     Route: 058
     Dates: start: 2019
  5. SEEBRI [Suspect]
     Active Substance: GLYCOPYRROLATE
     Indication: ASTHMA
     Dosage: 1 PUFF, AT 3 PM (5 YEARS AGO)
     Route: 065
  6. MONTELAIR [Concomitant]
     Active Substance: MONTELUKAST SODIUM
  7. PIEMONTE [Concomitant]
     Active Substance: MONTELUKAST SODIUM
  8. XOLAIR [Suspect]
     Active Substance: OMALIZUMAB
     Route: 065
  9. XOLAIR [Suspect]
     Active Substance: OMALIZUMAB
     Indication: ASTHMA
     Dosage: 4 AMPOULES
     Route: 065
     Dates: start: 20190410
  10. SEEBRI [Suspect]
     Active Substance: GLYCOPYRROLATE
     Dosage: 6 YEARS AGO)
     Route: 055
  11. XOLAIR [Suspect]
     Active Substance: OMALIZUMAB
     Dosage: (STARTED 1 YEAR AND 8 MONTHS AGO)
     Route: 065
     Dates: start: 20201217

REACTIONS (23)
  - Total lung capacity decreased [Unknown]
  - Asthma [Unknown]
  - Intestinal haemorrhage [Recovered/Resolved]
  - Fear [Unknown]
  - Asthmatic crisis [Not Recovered/Not Resolved]
  - Panic disorder [Not Recovered/Not Resolved]
  - Intestinal polyp [Recovered/Resolved]
  - Near death experience [Recovered/Resolved]
  - Dyspnoea [Recovered/Resolved]
  - Fatigue [Unknown]
  - Condition aggravated [Unknown]
  - Enteritis infectious [Recovered/Resolved]
  - Chills [Not Recovered/Not Resolved]
  - Drug ineffective [Unknown]
  - Hypersensitivity [Not Recovered/Not Resolved]
  - Gait disturbance [Unknown]
  - Malaise [Unknown]
  - Dyspnoea [Unknown]
  - Dyspnoea [Unknown]
  - Bronchitis [Unknown]
  - Nasopharyngitis [Not Recovered/Not Resolved]
  - Feeling abnormal [Recovered/Resolved]
  - Near death experience [Unknown]

NARRATIVE: CASE EVENT DATE: 2019
